FAERS Safety Report 20824747 (Version 3)
Quarter: 2024Q2

REPORT INFORMATION
  Report Type: Report from Study
  Country: US (occurrence: US)
  Receive Date: 20220513
  Receipt Date: 20240415
  Transmission Date: 20240716
  Serious: No
  Sender: FDA-Public Use
  Company Number: US-DECIPHERA PHARMACEUTICALS LLC-2022US000383

PATIENT
  Age: 73 Year
  Sex: Female

DRUGS (1)
  1. QINLOCK [Suspect]
     Active Substance: RIPRETINIB
     Indication: Gastrointestinal stromal tumour
     Dosage: 150 MILLIGRAM, QD
     Route: 048
     Dates: start: 20220110

REACTIONS (13)
  - Presyncope [Unknown]
  - Seasonal allergy [Unknown]
  - Thyroid disorder [Unknown]
  - Blood glucose increased [Unknown]
  - Blood pressure increased [Unknown]
  - Fatigue [Unknown]
  - Alopecia [Unknown]
  - Rash maculo-papular [Unknown]
  - Headache [Unknown]
  - Constipation [Unknown]
  - Dry skin [Unknown]
  - Pruritus [Unknown]
  - Product dose omission issue [Unknown]

NARRATIVE: CASE EVENT DATE: 20220101
